FAERS Safety Report 8319292-1 (Version None)
Quarter: 2012Q2

REPORT INFORMATION
  Report Type: 
  Country: None (occurrence: None)
  Receive Date: 20120427
  Receipt Date: 20120418
  Transmission Date: 20120825
  Serious: Yes (Other)
  Sender: FDA-Public Use
  Company Number: BR-ASTRAZENECA-2012SE23994

PATIENT
  Age: 647 Month
  Sex: Male
  Weight: 90 kg

DRUGS (11)
  1. ISOSORBIDE MONONITRATE [Concomitant]
  2. LIPITOR [Concomitant]
  3. LEVOTHYROXINE SODIUM [Concomitant]
  4. LYRICA [Concomitant]
  5. MULTIVITAMIN [Concomitant]
  6. ASPIRIN [Concomitant]
  7. INSULIN [Concomitant]
  8. FLUOXETINE [Concomitant]
  9. BRILINTA [Suspect]
     Indication: ANGIOPLASTY
     Route: 048
     Dates: start: 20120101
  10. RANITIDINE HCL [Concomitant]
  11. FERROUS SULFATE TAB [Concomitant]

REACTIONS (2)
  - OCULAR ISCHAEMIC SYNDROME [None]
  - EYE HAEMORRHAGE [None]
